FAERS Safety Report 7507390-1 (Version None)
Quarter: 2011Q2

REPORT INFORMATION
  Report Type: 
  Country: None (occurrence: None)
  Receive Date: 20110526
  Receipt Date: 20110517
  Transmission Date: 20111010
  Serious: Yes (Hospitalization, Other)
  Sender: FDA-Public Use
  Company Number: US-BAXTER-2010BH018713

PATIENT
  Age: 32 Year
  Sex: Female
  Weight: 45 kg

DRUGS (22)
  1. REGLAN [Suspect]
     Route: 042
     Dates: start: 20040118
  2. REGLAN [Suspect]
     Route: 042
     Dates: start: 20040424, end: 20040427
  3. REGLAN [Suspect]
     Route: 042
     Dates: start: 20040424, end: 20040427
  4. REGLAN [Suspect]
     Route: 042
     Dates: start: 20050101, end: 20050104
  5. KLONOPIN [Concomitant]
  6. METOCLOPRAMIDE [Suspect]
     Route: 048
     Dates: start: 20081013
  7. LEXAPRO [Concomitant]
  8. PHENERGAN HCL [Concomitant]
  9. REGLAN [Suspect]
     Route: 042
     Dates: start: 20050101, end: 20050104
  10. REGLAN [Suspect]
     Route: 042
     Dates: start: 20060925, end: 20060927
  11. METOCLOPRAMIDE [Suspect]
     Indication: VOMITING
     Route: 048
     Dates: start: 20040401
  12. METOCLOPRAMIDE [Suspect]
     Route: 048
     Dates: start: 20081013
  13. BACTRIM [Concomitant]
  14. REGLAN [Suspect]
     Indication: VOMITING
     Route: 042
     Dates: start: 20011223, end: 20011223
  15. REGLAN [Suspect]
     Route: 042
     Dates: start: 20080511, end: 20080513
  16. CARBINOXAMINE MALEATE [Concomitant]
  17. REGLAN [Suspect]
     Indication: NAUSEA
     Route: 042
     Dates: start: 20011223, end: 20011223
  18. REGLAN [Suspect]
     Route: 042
     Dates: start: 20040118
  19. REGLAN [Suspect]
     Route: 042
     Dates: start: 20060925, end: 20060927
  20. REGLAN [Suspect]
     Route: 042
     Dates: start: 20080511, end: 20080513
  21. METOCLOPRAMIDE [Suspect]
     Indication: NAUSEA
     Route: 048
     Dates: start: 20040401
  22. FLAGYL [Concomitant]

REACTIONS (10)
  - EPILEPSY [None]
  - CONCUSSION [None]
  - FEELING JITTERY [None]
  - DYSKINESIA [None]
  - CONVULSION [None]
  - PANCREATITIS [None]
  - MEMORY IMPAIRMENT [None]
  - SUBARACHNOID HAEMORRHAGE [None]
  - SYNCOPE [None]
  - EXCORIATION [None]
